FAERS Safety Report 6896906-4 (Version None)
Quarter: 2010Q3

REPORT INFORMATION
  Report Type: 
  Country: None (occurrence: None)
  Receive Date: 20100802
  Receipt Date: 20070302
  Transmission Date: 20110219
  Serious: Yes (Other)
  Sender: FDA-Public Use
  Company Number: US-PFIZER INC-2007017237

PATIENT
  Sex: Male
  Weight: 82.6 kg

DRUGS (6)
  1. LYRICA [Suspect]
     Indication: TRIGEMINAL NEURALGIA
     Dates: start: 20070222, end: 20070226
  2. VERAPAMIL [Concomitant]
  3. TEGRETOL [Concomitant]
  4. QUINAPRIL [Concomitant]
  5. CARDURA [Concomitant]
  6. AVODART [Concomitant]

REACTIONS (3)
  - ATAXIA [None]
  - NAUSEA [None]
  - VISUAL IMPAIRMENT [None]
